FAERS Safety Report 25266168 (Version 4)
Quarter: 2025Q2

REPORT INFORMATION
  Report Type: Spontaneous
  Country: JP (occurrence: JP)
  Receive Date: 20250504
  Receipt Date: 20250629
  Transmission Date: 20250717
  Serious: Yes (Death, Hospitalization)
  Sender: JOHNSON AND JOHNSON
  Company Number: JP-JNJFOC-20250425925

PATIENT
  Age: 8 Decade
  Sex: Female

DRUGS (2)
  1. RYBREVANT [Suspect]
     Active Substance: AMIVANTAMAB-VMJW
     Indication: Non-small cell lung cancer
     Route: 042
  2. RYBREVANT [Suspect]
     Active Substance: AMIVANTAMAB-VMJW
     Route: 042

REACTIONS (3)
  - Non-small cell lung cancer [Fatal]
  - Skin disorder [Recovering/Resolving]
  - Off label use [Unknown]

NARRATIVE: CASE EVENT DATE: 20250501
